FAERS Safety Report 17029508 (Version 4)
Quarter: 2021Q1

REPORT INFORMATION
  Report Type: Report from Study
  Country: GB (occurrence: GB)
  Receive Date: 20191114
  Receipt Date: 20210203
  Transmission Date: 20210419
  Serious: Yes (Hospitalization)
  Sender: FDA-Public Use
  Company Number: GB-TAKEDA-2019TUS065014

PATIENT
  Age: 75 Year
  Sex: Female

DRUGS (68)
  1. VENETOCLAX. [Suspect]
     Active Substance: VENETOCLAX
     Dosage: 600 MILLIGRAM, QD
     Route: 048
     Dates: start: 20190308
  2. DEXAMETHASONE. [Suspect]
     Active Substance: DEXAMETHASONE
     Indication: PLASMA CELL MYELOMA
     Dosage: 20 MILLIGRAM
     Route: 048
     Dates: start: 20170404, end: 20190927
  3. DEXAMETHASONE. [Suspect]
     Active Substance: DEXAMETHASONE
     Dosage: 12 MILLIGRAM
     Route: 048
     Dates: start: 20190524, end: 20191019
  4. ZOMETA [Concomitant]
     Active Substance: ZOLEDRONIC ACID
     Indication: BONE LESION
     Dosage: 4 MILLIGRAM, 4/WEEK
     Route: 042
     Dates: start: 201312
  5. PARACETAMOL [Concomitant]
     Active Substance: ACETAMINOPHEN
     Indication: HEADACHE
     Dosage: 1 GRAM
     Route: 048
     Dates: start: 20170410, end: 20170418
  6. SALBUTAMOL [Concomitant]
     Active Substance: ALBUTEROL
     Indication: PNEUMONIA
     Dosage: 2.5 MILLIGRAM
     Route: 055
     Dates: start: 20181221
  7. CETIRIZINE HYDROCHLORIDE. [Concomitant]
     Active Substance: CETIRIZINE HYDROCHLORIDE
     Indication: SEASONAL ALLERGY
     Dosage: 10 MILLIGRAM
     Route: 048
     Dates: start: 20170422
  8. QUININE SULPHATE [Concomitant]
     Active Substance: QUININE SULFATE
     Indication: PROPHYLAXIS
     Dosage: 300 MILLIGRAM, QD
     Route: 048
     Dates: start: 20180322
  9. CLENIL MODULITE [Concomitant]
     Active Substance: BECLOMETHASONE DIPROPIONATE
     Indication: LOWER RESPIRATORY TRACT INFECTION
     Dosage: UNK
     Route: 048
     Dates: start: 20181225
  10. MAGNESIUM ASPARTATE [Concomitant]
     Active Substance: MAGNESIUM ASPARTATE
     Indication: HYPOMAGNESAEMIA
     Dosage: 243 MILLIGRAM, QD
     Route: 048
     Dates: start: 20190117
  11. IMMUNOGLOBULIN                     /00025201/ [Concomitant]
     Active Substance: HUMAN IMMUNOGLOBULIN G
     Indication: INFECTION PROPHYLAXIS
     Dosage: 20 GRAM, Q3WEEKS
     Route: 042
     Dates: start: 20180318, end: 201811
  12. VENTOLIN [Concomitant]
     Active Substance: ALBUTEROL SULFATE
     Indication: ASTHMA
     Dosage: UNK
     Route: 048
     Dates: start: 1988
  13. METRONIDAZOLE. [Concomitant]
     Active Substance: METRONIDAZOLE
     Dosage: 400 MILLIGRAM, BID
     Route: 048
     Dates: start: 20181222
  14. VISCOTEARS [Concomitant]
     Active Substance: CARBOMER
     Indication: DRY EYE
     Dosage: UNK
     Route: 061
     Dates: start: 20181225
  15. SANDO K                            /00031402/ [Concomitant]
     Active Substance: POTASSIUM CHLORIDE
     Dosage: UNK, TID
     Route: 048
     Dates: start: 20181225, end: 20181227
  16. MOVICOL [Concomitant]
     Active Substance: POLYETHYLENE GLYCOL 3350\POTASSIUM CHLORIDE\SODIUM BICARBONATE\SODIUM CHLORIDE
     Indication: CONSTIPATION
     Dosage: UNK
     Route: 048
     Dates: start: 20190626
  17. BONJELA                            /00239201/ [Concomitant]
     Indication: MOUTH ULCERATION
     Dosage: UNK
     Route: 048
     Dates: start: 20170619
  18. ZEROBASE                           /00103901/ [Concomitant]
     Indication: DRY SKIN
     Dosage: UNK
     Route: 061
     Dates: start: 20181225
  19. SANDO K                            /00031402/ [Concomitant]
     Active Substance: POTASSIUM CHLORIDE
     Dosage: UNK, QD
     Route: 048
     Dates: start: 20190523
  20. SANDO K                            /00031402/ [Concomitant]
     Active Substance: POTASSIUM CHLORIDE
     Dosage: UNK, QD
     Route: 048
     Dates: start: 20170412, end: 20170412
  21. SANDO K                            /00031402/ [Concomitant]
     Active Substance: POTASSIUM CHLORIDE
     Dosage: UNK, TID
     Route: 048
     Dates: start: 20170413, end: 20170413
  22. SANDO K                            /00031402/ [Concomitant]
     Active Substance: POTASSIUM CHLORIDE
     Dosage: UNK, BID
     Route: 048
     Dates: start: 20170415, end: 20170415
  23. SANDO K                            /00031402/ [Concomitant]
     Active Substance: POTASSIUM CHLORIDE
     Dosage: UNK
     Route: 048
     Dates: start: 20171231, end: 20180104
  24. IMMUNOGLOBULIN                     /00025201/ [Concomitant]
     Active Substance: HUMAN IMMUNOGLOBULIN G
     Dosage: 20 GRAM, Q3WEEKS
     Route: 042
     Dates: start: 20190107
  25. PARACETAMOL [Concomitant]
     Active Substance: ACETAMINOPHEN
     Indication: LOWER RESPIRATORY TRACT INFECTION
  26. OMEPRAZOLE. [Concomitant]
     Active Substance: OMEPRAZOLE
     Indication: BARRETT^S OESOPHAGUS
     Dosage: 20 MILLIGRAM, BID
     Route: 048
     Dates: start: 201609, end: 201710
  27. LEVOFLOXACIN. [Concomitant]
     Active Substance: LEVOFLOXACIN
     Indication: ANTIBIOTIC PROPHYLAXIS
     Dosage: 500 MILLIGRAM
     Route: 048
     Dates: start: 20190322, end: 20191004
  28. VENETOCLAX. [Suspect]
     Active Substance: VENETOCLAX
     Dosage: 600 MILLIGRAM, QD
     Route: 048
     Dates: start: 20170530, end: 20190223
  29. GAVISCON                           /00237601/ [Concomitant]
     Active Substance: ALUMINUM HYDROXIDE\MAGNESIUM CARBONATE
     Indication: FLATULENCE
     Dosage: 5 MILLILITER
     Route: 048
     Dates: start: 20170626
  30. PARACETAMOL [Concomitant]
     Active Substance: ACETAMINOPHEN
     Indication: ARTHRALGIA
     Dosage: 1 GRAM
     Route: 048
     Dates: start: 20181221, end: 20181228
  31. SALBUTAMOL [Concomitant]
     Active Substance: ALBUTEROL
     Indication: ASTHMA
     Dosage: 200 MICROGRAM
     Route: 048
     Dates: start: 1997, end: 20181220
  32. BACTRIM [Concomitant]
     Active Substance: SULFAMETHOXAZOLE\TRIMETHOPRIM
     Indication: ANTIBIOTIC PROPHYLAXIS
     Dosage: 480 MILLIGRAM, QD
     Route: 048
     Dates: start: 20190322, end: 20191004
  33. BORTEZOMIB. [Suspect]
     Active Substance: BORTEZOMIB
     Indication: PLASMA CELL MYELOMA
     Dosage: 2 MILLIGRAM/SQ. METER
     Route: 058
     Dates: start: 20170404, end: 20170512
  34. BORTEZOMIB. [Suspect]
     Active Substance: BORTEZOMIB
     Dosage: 1.45 MILLIGRAM/SQ. METER
     Route: 058
     Dates: start: 20171003, end: 20190510
  35. BORTEZOMIB. [Suspect]
     Active Substance: BORTEZOMIB
     Dosage: 1.05 MILLIGRAM/SQ. METER
     Route: 058
     Dates: start: 20190726, end: 20191018
  36. SALBUTAMOL [Concomitant]
     Active Substance: ALBUTEROL
     Indication: DYSPNOEA
  37. SALBUTAMOL [Concomitant]
     Active Substance: ALBUTEROL
     Indication: DYSPNOEA
  38. OMEPRAZOLE. [Concomitant]
     Active Substance: OMEPRAZOLE
     Indication: OESOPHAGEAL ULCER
  39. METOCLOPRAMIDE. [Concomitant]
     Active Substance: METOCLOPRAMIDE
     Indication: VOMITING
     Dosage: 10 MILLIGRAM
     Route: 048
     Dates: start: 20170410
  40. CORSODYL [Concomitant]
     Active Substance: CHLORHEXIDINE GLUCONATE
     Indication: MOUTH ULCERATION
     Dosage: UNK
     Route: 048
     Dates: start: 20170604
  41. DIFFLAM [BENZYDAMINE] [Concomitant]
     Active Substance: BENZYDAMINE
     Indication: MOUTH ULCERATION
     Dosage: UNK
     Route: 048
     Dates: start: 20170619
  42. SANDO K                            /00031402/ [Concomitant]
     Active Substance: POTASSIUM CHLORIDE
     Indication: HYPOKALAEMIA
     Dosage: UNK, QD
     Route: 048
     Dates: start: 20190117, end: 20190506
  43. SANDO K                            /00031402/ [Concomitant]
     Active Substance: POTASSIUM CHLORIDE
     Dosage: UNK, QD
     Route: 048
     Dates: start: 20180320, end: 20180320
  44. SANDO K                            /00031402/ [Concomitant]
     Active Substance: POTASSIUM CHLORIDE
     Dosage: UNK
     Route: 048
     Dates: start: 20180321, end: 20180325
  45. FLUDROCORTISONE [Concomitant]
     Active Substance: FLUDROCORTISONE
     Indication: ORTHOSTATIC HYPOTENSION
     Dosage: UNK
     Route: 048
     Dates: start: 20190418
  46. BORTEZOMIB. [Suspect]
     Active Substance: BORTEZOMIB
     Dosage: 1.45 MILLIGRAM/SQ. METER
     Route: 058
     Dates: start: 20170530, end: 20170926
  47. BORTEZOMIB. [Suspect]
     Active Substance: BORTEZOMIB
     Dosage: 1.05 MILLIGRAM/SQ. METER
     Route: 058
     Dates: start: 20191213
  48. VENETOCLAX. [Suspect]
     Active Substance: VENETOCLAX
     Indication: PLASMA CELL MYELOMA
     Dosage: 800 MILLIGRAM, QD
     Route: 048
     Dates: start: 20170404, end: 20170522
  49. VENETOCLAX. [Suspect]
     Active Substance: VENETOCLAX
     Dosage: 400 MILLIGRAM, QD
     Route: 048
     Dates: start: 20190524, end: 20191101
  50. DEXAMETHASONE. [Suspect]
     Active Substance: DEXAMETHASONE
     Dosage: 20 MILLIGRAM
     Route: 048
     Dates: start: 20171003, end: 20190511
  51. DEXAMETHASONE. [Suspect]
     Active Substance: DEXAMETHASONE
     Dosage: 12 MILLIGRAM
     Route: 048
     Dates: start: 20191213
  52. ADCAL                              /07357001/ [Concomitant]
     Active Substance: CALCIUM CARBONATE
     Indication: MINERAL SUPPLEMENTATION
     Dosage: UNK
     Route: 048
  53. SALBUTAMOL [Concomitant]
     Active Substance: ALBUTEROL
     Indication: RESPIRATORY TRACT INFECTION
  54. OMEPRAZOLE. [Concomitant]
     Active Substance: OMEPRAZOLE
     Indication: DYSPEPSIA
     Dosage: 20 MILLIGRAM, BID
     Route: 048
     Dates: start: 201710
  55. OMEPRAZOLE. [Concomitant]
     Active Substance: OMEPRAZOLE
     Indication: HIATUS HERNIA
     Dosage: 20 MILLIGRAM, QD
     Route: 048
     Dates: start: 20181228
  56. METOCLOPRAMIDE. [Concomitant]
     Active Substance: METOCLOPRAMIDE
     Indication: PROPHYLAXIS OF NAUSEA AND VOMITING
  57. VALACYCLOVIR [Concomitant]
     Active Substance: VALACYCLOVIR HYDROCHLORIDE
     Indication: ANTIVIRAL PROPHYLAXIS
     Dosage: 500 MILLIGRAM, QD
     Route: 048
     Dates: start: 20170604
  58. IMODIUM [Concomitant]
     Active Substance: LOPERAMIDE HYDROCHLORIDE
     Indication: DIARRHOEA
     Dosage: UNK
     Route: 048
     Dates: start: 201705
  59. SANDO K                            /00031402/ [Concomitant]
     Active Substance: POTASSIUM CHLORIDE
     Dosage: UNK, QD
     Route: 048
     Dates: start: 20181224, end: 20181224
  60. LEVOFLOXACIN. [Concomitant]
     Active Substance: LEVOFLOXACIN
     Dosage: 500 MILLIGRAM
     Route: 048
     Dates: start: 20191011
  61. PARACETAMOL [Concomitant]
     Active Substance: ACETAMINOPHEN
     Indication: PNEUMONIA
     Dosage: 1 GRAM
     Route: 048
     Dates: start: 20170505
  62. PARACETAMOL [Concomitant]
     Active Substance: ACETAMINOPHEN
     Indication: PAIN IN EXTREMITY
  63. BECLOMETASONE [Concomitant]
     Active Substance: BECLOMETHASONE DIPROPIONATE
     Indication: ASTHMA
     Dosage: 400 MICROGRAM, BID
     Route: 048
     Dates: start: 1997
  64. MAGNESIUM                          /00454301/ [Concomitant]
     Indication: MUSCLE SPASMS
     Dosage: UNK, QD
     Route: 048
     Dates: start: 20171221
  65. DULOXETINE HYDROCHLORIDE. [Concomitant]
     Active Substance: DULOXETINE HYDROCHLORIDE
     Indication: PAIN IN EXTREMITY
     Dosage: 30 MILLIGRAM, QD
     Route: 048
     Dates: start: 20180830
  66. METRONIDAZOLE. [Concomitant]
     Active Substance: METRONIDAZOLE
     Indication: PRODUCT USED FOR UNKNOWN INDICATION
     Dosage: 400 MILLIGRAM, BID
     Dates: start: 20181221, end: 20181221
  67. BACTRIM [Concomitant]
     Active Substance: SULFAMETHOXAZOLE\TRIMETHOPRIM
     Dosage: 480 MILLIGRAM, QD
     Route: 048
     Dates: start: 20191011
  68. ALUDROX                            /00057401/ [Concomitant]
     Indication: HYPOMAGNESAEMIA
     Dosage: UNK, QD
     Route: 048
     Dates: start: 201906

REACTIONS (2)
  - C-reactive protein increased [Recovered/Resolved]
  - Rhinovirus infection [Recovered/Resolved]

NARRATIVE: CASE EVENT DATE: 20190222
